FAERS Safety Report 11777798 (Version 1)
Quarter: 2015Q4

REPORT INFORMATION
  Report Type: Spontaneous
  Country: US (occurrence: US)
  Receive Date: 20151125
  Receipt Date: 20151125
  Transmission Date: 20160304
  Serious: Yes (Death)
  Sender: FDA-Public Use
  Company Number: US-THE MEDICINES COMPANY-US-MDCO-14-00246

PATIENT

DRUGS (4)
  1. ANGIOMAX [Suspect]
     Active Substance: BIVALIRUDIN
     Indication: PERCUTANEOUS CORONARY INTERVENTION
     Dosage: STANDARD DOSE
     Route: 040
  2. ANGIOMAX [Suspect]
     Active Substance: BIVALIRUDIN
     Dosage: STANDARD DOSE
     Route: 041
  3. ANGIOMAX [Suspect]
     Active Substance: BIVALIRUDIN
     Dosage: STANDARD DOSE
     Route: 040
  4. ANGIOMAX [Suspect]
     Active Substance: BIVALIRUDIN
     Dosage: STANDARD DOSE
     Route: 041

REACTIONS (3)
  - Labelled drug-disease interaction medication error [Not Recovered/Not Resolved]
  - Catheter site haemorrhage [Recovered/Resolved]
  - Thoracic haemorrhage [Fatal]
